FAERS Safety Report 8470478-5 (Version None)
Quarter: 2012Q2

REPORT INFORMATION
  Report Type: 
  Country: None (occurrence: None)
  Receive Date: 20120620
  Receipt Date: 20120607
  Transmission Date: 20120825
  Serious: Yes (Hospitalization, Other)
  Sender: FDA-Public Use
  Company Number: 1312175

PATIENT
  Age: 15 Year
  Sex: Male

DRUGS (10)
  1. DOXORUBICIN HCL [Suspect]
  2. VINCRISTINE [Suspect]
  3. BACTRIM [Concomitant]
  4. DEXAMETHASONE [Suspect]
  5. MORPHINE [Concomitant]
  6. ONDANSETRON [Concomitant]
  7. LORAZEPAM [Concomitant]
  8. METHOTREXATE SODIUM [Suspect]
     Indication: PRODUCT USED FOR UNKNOWN INDICATION
  9. (GLUTAMIC ACID) [Concomitant]
  10. DASATINIB [Suspect]
     Indication: ACUTE LYMPHOCYTIC LEUKAEMIA
     Dosage: 90 MG, 1 DAY, ORAL
     Route: 048
     Dates: start: 20120206

REACTIONS (1)
  - FEBRILE NEUTROPENIA [None]
